FAERS Safety Report 18149856 (Version 1)
Quarter: 2020Q3

REPORT INFORMATION
  Report Type: Report from Study
  Country: US (occurrence: US)
  Receive Date: 20200814
  Receipt Date: 20200814
  Transmission Date: 20201103
  Serious: Yes (Hospitalization)
  Sender: FDA-Public Use
  Company Number: US-B.I. PHARMACEUTICALS,INC./RIDGEFIELD-2020-MR-035133

PATIENT
  Age: 88 Year
  Sex: Male

DRUGS (2)
  1. ELIQUIS [Concomitant]
     Active Substance: APIXABAN
     Indication: ATRIAL FIBRILLATION
     Route: 065
  2. OFEV [Suspect]
     Active Substance: NINTEDANIB
     Indication: IDIOPATHIC PULMONARY FIBROSIS
     Dosage: 150 MG TWICE A DAY (BID)
     Route: 048
     Dates: start: 20200623, end: 2020

REACTIONS (12)
  - Decreased appetite [Unknown]
  - Constipation [Unknown]
  - Diarrhoea [Recovered/Resolved]
  - Vomiting [Recovered/Resolved]
  - Back pain [Not Recovered/Not Resolved]
  - Illness [Recovered/Resolved]
  - Dehydration [Recovered/Resolved]
  - Asthenia [Not Recovered/Not Resolved]
  - Decreased appetite [Recovered/Resolved]
  - Abdominal pain upper [Not Recovered/Not Resolved]
  - Feeling cold [Not Recovered/Not Resolved]
  - Hypertension [Not Recovered/Not Resolved]

NARRATIVE: CASE EVENT DATE: 2020
